FAERS Safety Report 5822944-6 (Version None)
Quarter: 2008Q3

REPORT INFORMATION
  Report Type: 
  Country: None (occurrence: None)
  Receive Date: 20080724
  Receipt Date: 20080724
  Transmission Date: 20090109
  Serious: Yes (Disabling, Other)
  Sender: FDA-Public Use
  Company Number: None

PATIENT
  Age: 50 Year
  Sex: Female
  Weight: 79.3795 kg

DRUGS (1)
  1. ACTONEL [Suspect]
     Indication: OSTEOPOROSIS
     Dosage: 1 PILL 1 A WK. SAMPL FROM DR. OFFICE
     Dates: start: 20080301

REACTIONS (5)
  - BONE PAIN [None]
  - GRIP STRENGTH DECREASED [None]
  - HYPERSENSITIVITY [None]
  - INFLAMMATION [None]
  - MYALGIA [None]
